FAERS Safety Report 7618903-3 (Version None)
Quarter: 2011Q3

REPORT INFORMATION
  Report Type: 
  Country: None (occurrence: None)
  Receive Date: 20110718
  Receipt Date: 20110712
  Transmission Date: 20111222
  Serious: Yes (Other)
  Sender: FDA-Public Use
  Company Number: DE-PFIZER INC-2011158379

PATIENT
  Age: 40 Year
  Sex: Male

DRUGS (1)
  1. DOXORUBICIN HCL [Suspect]
     Indication: MUCOEPIDERMOID CARCINOMA
     Dosage: UNK

REACTIONS (4)
  - CORONARY OSTIAL STENOSIS [None]
  - ATRIOVENTRICULAR BLOCK COMPLETE [None]
  - HEART VALVE CALCIFICATION [None]
  - LEFT VENTRICULAR DYSFUNCTION [None]
